FAERS Safety Report 8812452 (Version 1)
Quarter: 2012Q4

REPORT INFORMATION
  Report Type: 
  Country: JP (occurrence: JP)
  Receive Date: 20120927
  Receipt Date: 20120927
  Transmission Date: 20130627
  Serious: Yes (Other)
  Sender: FDA-Public Use
  Company Number: JP-B.I. PHARMACEUTICALS,INC./RIDGEFIELD-2012-BP-22960NB

PATIENT
  Sex: Female

DRUGS (1)
  1. BI-SIFROL [Suspect]
     Indication: PARKINSON^S DISEASE
     Route: 048

REACTIONS (1)
  - Femur fracture [Unknown]
